FAERS Safety Report 7498639-2 (Version None)
Quarter: 2011Q2

REPORT INFORMATION
  Report Type: 
  Country: None (occurrence: None)
  Receive Date: 20110524
  Receipt Date: 20110509
  Transmission Date: 20111010
  Serious: Yes (Hospitalization, Other)
  Sender: FDA-Public Use
  Company Number: CA-ELI_LILLY_AND_COMPANY-CA201105002125

PATIENT
  Sex: Female

DRUGS (13)
  1. ZYPREXA [Suspect]
     Dosage: 7.5 MG, EACH EVENING
  2. RISPERDAL [Concomitant]
  3. CARDURA [Concomitant]
  4. ZYPREXA [Suspect]
     Dosage: 2.5 MG, EACH EVENING
  5. FLOVENT [Concomitant]
     Dosage: 2 DF, BID
  6. VENTOLIN [Concomitant]
     Dosage: UNK
  7. ZYPREXA [Suspect]
     Dosage: 5 MG, UNKNOWN
  8. ADALAT CC [Concomitant]
     Indication: HYPERTENSION
  9. SERTRALINE HYDROCHLORIDE [Concomitant]
  10. ZYPREXA [Suspect]
     Dosage: 5 MG, QD
  11. CLONAZEPAM [Concomitant]
  12. PREDNISONE [Concomitant]
  13. ZYPREXA [Suspect]
     Indication: DELIRIUM
     Dosage: 2.5 MG, UNKNOWN

REACTIONS (15)
  - BRONCHOPNEUMONIA [None]
  - TACHYCARDIA [None]
  - ELECTROCARDIOGRAM QT PROLONGED [None]
  - PLEURAL EFFUSION [None]
  - PNEUMONIA [None]
  - DIABETES MELLITUS [None]
  - ASTHMA [None]
  - DEEP VEIN THROMBOSIS [None]
  - HYPERTENSION [None]
  - SINUSITIS [None]
  - HEPATIC STEATOSIS [None]
  - DYSLIPIDAEMIA [None]
  - CARDIAC DISORDER [None]
  - GLAUCOMA [None]
  - INFECTION [None]
